FAERS Safety Report 21955911 (Version 14)
Quarter: 2023Q4

REPORT INFORMATION
  Report Type: Report from Study
  Country: US (occurrence: US)
  Receive Date: 20230206
  Receipt Date: 20231116
  Transmission Date: 20240110
  Serious: Yes (Life-Threatening, Hospitalization)
  Sender: FDA-Public Use
  Company Number: US-ARGENX-2022-ARGX-US001825

PATIENT

DRUGS (2)
  1. VYVGART [Suspect]
     Active Substance: EFGARTIGIMOD ALFA-FCAB
     Indication: Myasthenia gravis
     Dosage: UNK
     Route: 042
     Dates: start: 20220909
  2. CYMBALTA [Concomitant]
     Active Substance: DULOXETINE HYDROCHLORIDE
     Indication: Headache
     Dosage: UNK

REACTIONS (25)
  - Myasthenia gravis crisis [Unknown]
  - Disease progression [Not Recovered/Not Resolved]
  - Medication error [Unknown]
  - Infusion site bruising [Unknown]
  - Infusion site mass [Unknown]
  - Cough [Unknown]
  - Oropharyngeal pain [Unknown]
  - Sinus headache [Unknown]
  - Nasopharyngitis [Unknown]
  - Lower respiratory tract infection viral [Unknown]
  - Dizziness [Unknown]
  - Nasopharyngitis [Unknown]
  - Therapeutic response decreased [Unknown]
  - Drug effect less than expected [Unknown]
  - Muscular weakness [Unknown]
  - Aphonia [Unknown]
  - Inappropriate schedule of product administration [Unknown]
  - Weight increased [Not Recovered/Not Resolved]
  - Myasthenia gravis [Unknown]
  - Anxiety [Unknown]
  - Insomnia [Unknown]
  - Muscular weakness [Unknown]
  - Poor quality sleep [Unknown]
  - Myasthenia gravis [Unknown]
  - Viral infection [Unknown]

NARRATIVE: CASE EVENT DATE: 20220909
